FAERS Safety Report 10062704 (Version 2)
Quarter: 2014Q2

REPORT INFORMATION
  Report Type: Spontaneous
  Country: US (occurrence: US)
  Receive Date: 20140407
  Receipt Date: 20140611
  Transmission Date: 20141212
  Serious: Yes (Hospitalization)
  Sender: FDA-Public Use
  Company Number: US-GLAXOSMITHKLINE-A1067498A

PATIENT
  Sex: Female

DRUGS (2)
  1. LOVAZA [Suspect]
     Indication: BLOOD CHOLESTEROL INCREASED
     Dosage: 1CAP TWICE PER DAY
     Route: 048
     Dates: start: 2011
  2. SYNTHROID [Concomitant]

REACTIONS (7)
  - Coeliac disease [Recovering/Resolving]
  - Weight decreased [Recovering/Resolving]
  - Blood cholesterol decreased [Recovering/Resolving]
  - Gastric disorder [Recovering/Resolving]
  - Arthralgia [Recovering/Resolving]
  - Myalgia [Recovering/Resolving]
  - Asthenia [Recovering/Resolving]
